FAERS Safety Report 8211029-X (Version None)
Quarter: 2012Q1

REPORT INFORMATION
  Report Type: 
  Country: None (occurrence: None)
  Receive Date: 20120315
  Receipt Date: 20120305
  Transmission Date: 20120608
  Serious: Yes (Other)
  Sender: FDA-Public Use
  Company Number: PHEH2012US005204

PATIENT
  Sex: Female

DRUGS (1)
  1. EXJADE [Suspect]
     Indication: IRON METABOLISM DISORDER
     Dosage: 1500 MG QD
     Route: 048

REACTIONS (6)
  - BONE PAIN [None]
  - NEOPLASM PROGRESSION [None]
  - HEPATIC NEOPLASM MALIGNANT [None]
  - ASTHENIA [None]
  - FALL [None]
  - CONFUSIONAL STATE [None]
